FAERS Safety Report 21059032 (Version 1)
Quarter: 2022Q3

REPORT INFORMATION
  Report Type: Spontaneous
  Country: US (occurrence: None)
  Receive Date: 20220708
  Receipt Date: 20220708
  Transmission Date: 20221027
  Serious: No
  Sender: FDA-Public Use
  Company Number: None

PATIENT
  Age: 43 Year
  Sex: Male
  Weight: 68.95 kg

DRUGS (26)
  1. ONDANSETRON [Suspect]
     Active Substance: ONDANSETRON
     Indication: Lung neoplasm malignant
     Dosage: OTHER FREQUENCY : UTD;?
     Route: 042
     Dates: start: 202202, end: 20220708
  2. PALONOSETRON [Suspect]
     Active Substance: PALONOSETRON
     Indication: Lung neoplasm malignant
     Dosage: FREQUENCY : EVERY THREE WEEKS;?
     Route: 042
     Dates: start: 202202, end: 20220708
  3. ACETAMINOPHEN [Concomitant]
     Active Substance: ACETAMINOPHEN
  4. ALBUTEROL [Concomitant]
     Active Substance: ALBUTEROL
  5. ALPRAZOLAM [Concomitant]
     Active Substance: ALPRAZOLAM
  6. BENZONATATE [Concomitant]
     Active Substance: BENZONATATE
  7. BISACODYL [Concomitant]
     Active Substance: BISACODYL
  8. CEPHALEXIN [Concomitant]
     Active Substance: CEPHALEXIN
  9. CITALOPRAM [Concomitant]
     Active Substance: CITALOPRAM HYDROBROMIDE
  10. EMEND [Concomitant]
     Active Substance: APREPITANT
  11. OMEPRAZOLE [Concomitant]
     Active Substance: OMEPRAZOLE
  12. ESCITALOPRAM [Concomitant]
     Active Substance: ESCITALOPRAM OXALATE
  13. ETOPOSIDE [Concomitant]
     Active Substance: ETOPOSIDE
  14. FLUOXETINE [Concomitant]
     Active Substance: FLUOXETINE HYDROCHLORIDE
  15. FLUVOXAMINE [Concomitant]
     Active Substance: FLUVOXAMINE
  16. FUROSEMIDE [Concomitant]
     Active Substance: FUROSEMIDE
  17. HYCAMTIN [Concomitant]
     Active Substance: TOPOTECAN HYDROCHLORIDE
  18. HYOSCYAMINE [Concomitant]
     Active Substance: HYOSCYAMINE
  19. LORAZEPAM [Concomitant]
     Active Substance: LORAZEPAM
  20. MIRTAZAPINE [Concomitant]
     Active Substance: MIRTAZAPINE
  21. NALOXONE [Concomitant]
     Active Substance: NALOXONE
  22. ONDANSETRON [Concomitant]
     Active Substance: ONDANSETRON
  23. PREDNISONE [Concomitant]
     Active Substance: PREDNISONE
  24. PROAIR HFA [Concomitant]
     Active Substance: ALBUTEROL SULFATE
  25. SYMBICORT [Concomitant]
     Active Substance: BUDESONIDE\FORMOTEROL FUMARATE DIHYDRATE
  26. XANAX [Concomitant]
     Active Substance: ALPRAZOLAM

REACTIONS (1)
  - Disease progression [None]
